FAERS Safety Report 23295828 (Version 1)
Quarter: 2023Q4

REPORT INFORMATION
  Report Type: Spontaneous
  Country: DE (occurrence: DE)
  Receive Date: 20231214
  Receipt Date: 20231214
  Transmission Date: 20240110
  Serious: Yes (Death, Other)
  Sender: FDA-Public Use
  Company Number: DE-SANDOZ-SDZ2023DE067951

PATIENT
  Age: 62 Year
  Sex: Male

DRUGS (2)
  1. ZOLEDRONIC ACID [Suspect]
     Active Substance: ZOLEDRONIC ACID
     Indication: Malignant melanoma
     Dosage: UNK
     Route: 042
  2. IPILIMUMAB;NIVOLUMAB [Concomitant]
     Indication: Malignant melanoma
     Dosage: UNK
     Route: 065

REACTIONS (2)
  - Neoplasm progression [Fatal]
  - Malignant melanoma [Fatal]
